FAERS Safety Report 12750008 (Version 2)
Quarter: 2016Q3

REPORT INFORMATION
  Report Type: Report from Study
  Country: FR (occurrence: FR)
  Receive Date: 20160916
  Receipt Date: 20160930
  Transmission Date: 20161109
  Serious: Yes (Death, Life-Threatening, Hospitalization)
  Sender: FDA-Public Use
  Company Number: FR-CELGENEUS-056-21880-13040716

PATIENT
  Age: 91 Year
  Sex: Male
  Weight: 86 kg

DRUGS (9)
  1. REVLIMID [Suspect]
     Active Substance: LENALIDOMIDE
     Route: 048
     Dates: start: 20121022
  2. BISOPROLOL [Concomitant]
     Active Substance: BISOPROLOL
     Indication: HYPERTENSION
     Dosage: 10 MILLIGRAM
     Route: 065
     Dates: start: 1982
  3. REVLIMID [Suspect]
     Active Substance: LENALIDOMIDE
     Indication: LYMPHOMA
     Route: 048
     Dates: start: 20121022
  4. ZANIDIP [Concomitant]
     Active Substance: LERCANIDIPINE HYDROCHLORIDE
     Indication: HYPERTENSION
     Dosage: 20 MILLIGRAM
     Route: 065
     Dates: start: 1982
  5. REVLIMID [Suspect]
     Active Substance: LENALIDOMIDE
     Route: 048
     Dates: start: 20121022, end: 20130402
  6. KARDEGIC [Concomitant]
     Active Substance: ASPIRIN LYSINE
     Indication: INFARCTION
     Dosage: 160 MILLIGRAM
     Route: 065
     Dates: start: 1996
  7. DOXIUM [Concomitant]
     Indication: PERIPHERAL VENOUS DISEASE
     Dosage: 250 MILLIGRAM
     Route: 065
     Dates: start: 1982
  8. LORAZEPAM. [Concomitant]
     Active Substance: LORAZEPAM
     Indication: ANXIETY
     Dosage: 1.25 MILLIGRAM
     Route: 065
     Dates: start: 1982
  9. EPINITRIL [Concomitant]
     Active Substance: NITROGLYCERIN
     Indication: INFARCTION
     Route: 065
     Dates: start: 1986

REACTIONS (1)
  - Ischaemic stroke [Fatal]

NARRATIVE: CASE EVENT DATE: 20130114
